FAERS Safety Report 14781111 (Version 3)
Quarter: 2018Q2

REPORT INFORMATION
  Report Type: Spontaneous
  Country: DE (occurrence: DE)
  Receive Date: 20180419
  Receipt Date: 20180611
  Transmission Date: 20180711
  Serious: Yes (Hospitalization, Other)
  Sender: FDA-Public Use
  Company Number: DE-REGENERON PHARMACEUTICALS, INC.-2018-21458

PATIENT

DRUGS (1)
  1. EYLEA [Suspect]
     Active Substance: AFLIBERCEPT
     Indication: MACULAR DEGENERATION
     Dosage: INJECTION LEFT EYE, 0.05 ML ONCE
     Route: 031
     Dates: start: 20180222, end: 20180222

REACTIONS (4)
  - Blindness unilateral [Recovering/Resolving]
  - Macular hole [Recovering/Resolving]
  - Product use issue [Unknown]
  - Intraocular pressure decreased [Recovering/Resolving]

NARRATIVE: CASE EVENT DATE: 20180222
